FAERS Safety Report 11967230 (Version 1)
Quarter: 2016Q1

REPORT INFORMATION
  Report Type: Spontaneous
  Country: US (occurrence: US)
  Receive Date: 20160127
  Receipt Date: 20160127
  Transmission Date: 20160526
  Serious: No
  Sender: FDA-Public Use
  Company Number: GXBR2015US002213

PATIENT
  Sex: Male
  Weight: 74.38 kg

DRUGS (1)
  1. IMIQUIMOD. [Suspect]
     Active Substance: IMIQUIMOD
     Indication: SOLAR DERMATITIS
     Dosage: 5 %, UNK
     Route: 061
     Dates: start: 20150914

REACTIONS (1)
  - Application site pain [Not Recovered/Not Resolved]
